FAERS Safety Report 12746559 (Version 4)
Quarter: 2016Q3

REPORT INFORMATION
  Report Type: Spontaneous
  Country: US (occurrence: US)
  Receive Date: 20160915
  Receipt Date: 20160927
  Transmission Date: 20161109
  Serious: Yes (Death)
  Sender: FDA-Public Use
  Company Number: US-B.I. PHARMACEUTICALS,INC./RIDGEFIELD-2016-BI-60541BP

PATIENT
  Sex: Male

DRUGS (1)
  1. PRAXBIND [Suspect]
     Active Substance: IDARUCIZUMAB
     Indication: ANTICOAGULANT THERAPY
     Dosage: FORMULATION:INJECTION
     Route: 065

REACTIONS (1)
  - Injury [Fatal]
